FAERS Safety Report 5809160-9 (Version None)
Quarter: 2008Q3

REPORT INFORMATION
  Report Type: 
  Country: None (occurrence: None)
  Receive Date: 20080714
  Receipt Date: 20080702
  Transmission Date: 20090109
  Serious: Yes (Life-Threatening, Hospitalization, Other)
  Sender: FDA-Public Use
  Company Number: FR-PFIZER INC-2008048832

PATIENT
  Sex: Female

DRUGS (9)
  1. LYRICA [Suspect]
     Indication: POST HERPETIC NEURALGIA
  2. WARFARIN SODIUM [Concomitant]
  3. LODALES [Concomitant]
  4. OLMETEC [Concomitant]
  5. DIGOXIN [Concomitant]
  6. LERCAN [Concomitant]
  7. HYPERIUM [Concomitant]
  8. KARDEGIC [Concomitant]
  9. LASIX [Concomitant]

REACTIONS (3)
  - ARRHYTHMIA [None]
  - ATRIAL FIBRILLATION [None]
  - CARDIAC FAILURE [None]
